FAERS Safety Report 9759609 (Version 1)
Quarter: 2013Q4

REPORT INFORMATION
  Report Type: Spontaneous
  Country: US (occurrence: US)
  Receive Date: 20131216
  Receipt Date: 20131216
  Transmission Date: 20140711
  Serious: No
  Sender: FDA-Public Use
  Company Number: US-GILEAD-2010-0028242

PATIENT
  Sex: Female
  Weight: 74.84 kg

DRUGS (16)
  1. LETAIRIS [Suspect]
     Indication: PULMONARY ARTERIAL HYPERTENSION
     Route: 048
     Dates: start: 20090909
  2. REMODULIN [Concomitant]
  3. VIAGRA [Concomitant]
  4. ADULT ASPIRIN [Concomitant]
  5. FUROSEMIDE [Concomitant]
  6. SIMVASTATIN [Concomitant]
  7. CHLORPHENIRAMINE [Concomitant]
  8. BUPROPION [Concomitant]
  9. OMEPRAZOLE [Concomitant]
  10. DOCUSATE [Concomitant]
  11. FLUOCINONIDE [Concomitant]
  12. METROCREAM [Concomitant]
  13. METHOCARB [Concomitant]
  14. MULTIVITAMIN [Concomitant]
  15. SODIUM CHLORIDE [Concomitant]
  16. FERROUS GLUCONATE [Concomitant]

REACTIONS (1)
  - Nasal congestion [Unknown]
